FAERS Safety Report 7435183-2 (Version None)
Quarter: 2011Q2

REPORT INFORMATION
  Report Type: 
  Country: None (occurrence: None)
  Receive Date: 20110425
  Receipt Date: 20110411
  Transmission Date: 20111010
  Serious: Yes (Disabling, Other)
  Sender: FDA-Public Use
  Company Number: PHHY2011JP31391

PATIENT
  Sex: Female
  Weight: 50 kg

DRUGS (16)
  1. SIGMART [Concomitant]
     Dosage: 10 MG, UNK
     Route: 048
     Dates: start: 20100813, end: 20100922
  2. LASIX [Concomitant]
     Dosage: 40 MG, UNK
     Dates: start: 20100822, end: 20100924
  3. SOLDACTONE [Concomitant]
     Dosage: 100 MG, UNK
     Dates: start: 20100825, end: 20100924
  4. MICARDIS [Concomitant]
     Dosage: 40 MG, UNK
     Route: 048
     Dates: end: 20100922
  5. MYSLEE [Concomitant]
     Dosage: 10 MG, UNK
     Route: 048
     Dates: start: 20100322, end: 20100922
  6. MAGMITT [Concomitant]
     Dosage: 1980 MG, UNK
     Route: 048
     Dates: start: 20100428, end: 20100922
  7. AFINITOR [Suspect]
     Indication: RENAL CELL CARCINOMA
     Dosage: 5 MG, DAILY
     Route: 048
     Dates: start: 20100602, end: 20100822
  8. DEPROMEL [Concomitant]
     Dosage: 100 MG, UNK
     Route: 048
     Dates: end: 20100910
  9. ANPEC [Concomitant]
     Indication: RENAL CELL CARCINOMA
     Dosage: 10 MG, UNK
     Route: 048
     Dates: start: 20100703, end: 20100922
  10. DEPAS [Concomitant]
     Dosage: 1 MG, UNK
     Route: 048
     Dates: end: 20100921
  11. HERBESSER [Concomitant]
     Dosage: 200 MG, UNK
     Route: 048
     Dates: end: 20100921
  12. NITOROL [Concomitant]
     Dosage: 5 MG, UNK
     Route: 048
     Dates: start: 20100813, end: 20100922
  13. TAKEPRON [Concomitant]
     Dosage: 15 MG, UNK
     Route: 048
     Dates: end: 20100922
  14. SINGULAIR [Concomitant]
     Dosage: 10 MG, UNK
     Route: 048
     Dates: start: 20080424, end: 20100922
  15. PLAVIX [Concomitant]
     Dosage: 75 MG, UNK
     Route: 048
     Dates: end: 20100922
  16. NITOROL R [Concomitant]
     Dosage: 80 MG, UNK
     Route: 048
     Dates: end: 20100921

REACTIONS (3)
  - PLEURAL EFFUSION [None]
  - BLOOD URIC ACID INCREASED [None]
  - NEOPLASM MALIGNANT [None]
